FAERS Safety Report 23431791 (Version 1)
Quarter: 2024Q1

REPORT INFORMATION
  Report Type: Spontaneous
  Country: FR (occurrence: FR)
  Receive Date: 20240123
  Receipt Date: 20240123
  Transmission Date: 20240410
  Serious: Yes (Death)
  Sender: FDA-Public Use
  Company Number: FR-AFSSAPS-AN2023001248

PATIENT
  Age: 54 Year
  Sex: Male
  Weight: 90 kg

DRUGS (11)
  1. GABAPENTIN [Suspect]
     Active Substance: GABAPENTIN
     Indication: Pain
     Dosage: 1.6 GRAM, DAILY
     Route: 048
     Dates: end: 20230712
  2. ACETAMINOPHEN [Suspect]
     Active Substance: ACETAMINOPHEN
     Indication: Pain
     Dosage: 3 DOSAGE FORM, DAILY
     Route: 048
     Dates: end: 20230712
  3. MORPHINE [Suspect]
     Active Substance: MORPHINE
     Indication: Pain
     Dosage: 30 MILLIGRAM, DAILY
     Route: 048
     Dates: end: 20230712
  4. VALACYCLOVIR HYDROCHLORIDE [Suspect]
     Active Substance: VALACYCLOVIR HYDROCHLORIDE
     Indication: Prophylaxis
     Dosage: 1 DOSAGE FORM, DAILY
     Route: 048
     Dates: end: 20230712
  5. PREDNISONE [Suspect]
     Active Substance: PREDNISONE
     Indication: Chronic graft versus host disease
     Dosage: 10 MILLIGRAM, DAILY
     Route: 048
     Dates: end: 20230712
  6. AMITRIPTYLINE HYDROCHLORIDE [Suspect]
     Active Substance: AMITRIPTYLINE HYDROCHLORIDE
     Indication: Pain
     Dosage: 75 MILLIGRAM, DAILY
     Route: 048
     Dates: end: 20230712
  7. CISPLATIN [Suspect]
     Active Substance: CISPLATIN
     Indication: Squamous cell carcinoma of skin
     Dosage: 205 MILLIGRAM
     Route: 040
     Dates: start: 20230630, end: 20230630
  8. CETUXIMAB [Suspect]
     Active Substance: CETUXIMAB
     Indication: Squamous cell carcinoma of skin
     Dosage: 400 MILLIGRAM PER CUBIC METRE, IN TOTAL
     Route: 040
     Dates: start: 20230630, end: 20230630
  9. AMIODARONE [Suspect]
     Active Substance: AMIODARONE
     Indication: Chronic graft versus host disease
     Dosage: 2 DOSAGE FORM, DAILY
     Route: 003
     Dates: end: 202307
  10. RUXOLITINIB [Suspect]
     Active Substance: RUXOLITINIB
     Indication: Chronic graft versus host disease
     Dosage: 1 DOSAGE FORM, DAILY
     Route: 048
     Dates: end: 20230711
  11. DOXYCYCLINE [Suspect]
     Active Substance: DOXYCYCLINE
     Indication: Product used for unknown indication
     Dosage: 1 DOSAGE FORM, DAILY
     Route: 048
     Dates: end: 20230712

REACTIONS (3)
  - Aortic thrombosis [Fatal]
  - Mesenteric artery thrombosis [Fatal]
  - Renal infarct [Fatal]

NARRATIVE: CASE EVENT DATE: 20230703
